FAERS Safety Report 23801048 (Version 1)
Quarter: 2024Q2

REPORT INFORMATION
  Report Type: Spontaneous
  Country: US (occurrence: None)
  Receive Date: 20240430
  Receipt Date: 20240430
  Transmission Date: 20240716
  Serious: Yes (Disabling)
  Sender: FDA-Public Use
  Company Number: 2024A096566

PATIENT
  Sex: Male

DRUGS (1)
  1. SEROQUEL [Suspect]
     Active Substance: QUETIAPINE FUMARATE
     Route: 048

REACTIONS (8)
  - Skeletal injury [Unknown]
  - Abdominal distension [Unknown]
  - Abdominal discomfort [Unknown]
  - Arthralgia [Unknown]
  - Dry mouth [Unknown]
  - Product physical issue [Unknown]
  - Product use issue [Unknown]
  - Product use issue [Unknown]
